FAERS Safety Report 12538242 (Version 1)
Quarter: 2016Q3

REPORT INFORMATION
  Report Type: Spontaneous
  Country: US (occurrence: US)
  Receive Date: 20160707
  Receipt Date: 20160707
  Transmission Date: 20161109
  Serious: No
  Sender: FDA-Public Use
  Company Number: US-CELGENEUS-USA-2016066465

PATIENT
  Sex: Female

DRUGS (1)
  1. OTEZLA [Suspect]
     Active Substance: APREMILAST
     Indication: PSORIASIS
     Dosage: 60 MILLIGRAM
     Route: 048
     Dates: start: 20151116

REACTIONS (6)
  - Drug ineffective [Unknown]
  - Nausea [Unknown]
  - Nervousness [Unknown]
  - Weight decreased [Unknown]
  - Diarrhoea [Unknown]
  - Stress [Unknown]
